FAERS Safety Report 16668079 (Version 1)
Quarter: 2019Q3

REPORT INFORMATION
  Report Type: Spontaneous
  Country: FR (occurrence: FR)
  Receive Date: 20190805
  Receipt Date: 20190805
  Transmission Date: 20191004
  Serious: Yes (Hospitalization)
  Sender: FDA-Public Use
  Company Number: FR-JNJFOC-20190741112

PATIENT
  Age: 41 Year
  Sex: Female
  Weight: 74 kg

DRUGS (2)
  1. RISPERDAL [Suspect]
     Active Substance: RISPERIDONE
     Indication: SCHIZOPHRENIA
     Route: 048
     Dates: start: 20190517, end: 20190703
  2. TEGRETOL [Suspect]
     Active Substance: CARBAMAZEPINE
     Indication: SCHIZOPHRENIA
     Route: 048
     Dates: start: 20190529, end: 20190626

REACTIONS (1)
  - Drug reaction with eosinophilia and systemic symptoms [Recovering/Resolving]

NARRATIVE: CASE EVENT DATE: 20190618
